FAERS Safety Report 6219236-2 (Version None)
Quarter: 2009Q2

REPORT INFORMATION
  Report Type: 
  Country: None (occurrence: None)
  Receive Date: 20090609
  Receipt Date: 20090605
  Transmission Date: 20091009
  Serious: Yes (Death)
  Sender: FDA-Public Use
  Company Number: DE-BRISTOL-MYERS SQUIBB COMPANY-14652416

PATIENT
  Age: 57 Year
  Sex: Male
  Weight: 52 kg

DRUGS (3)
  1. CETUXIMAB [Suspect]
     Indication: GASTRIC CANCER
     Dosage: INITIAL DOSE:13MAY09 (400 MG/M2) RECENT DOSE:22MAY09-STOPPED CETUXIMAB 2MG/ML
     Route: 042
     Dates: start: 20090522
  2. CISPLATIN [Suspect]
     Indication: GASTRIC CANCER
     Dosage: INITIAL DOSE:13MAY09-STOPPED
     Route: 042
     Dates: start: 20090513
  3. TAXOTERE [Suspect]
     Indication: GASTRIC CANCER
     Dosage: INITIAL DOSE:13MAY09-STOPPED
     Route: 042
     Dates: start: 20090513

REACTIONS (1)
  - PULMONARY EMBOLISM [None]
